FAERS Safety Report 7730839-6 (Version None)
Quarter: 2011Q3

REPORT INFORMATION
  Report Type: 
  Country: None (occurrence: None)
  Receive Date: 20110906
  Receipt Date: 20110901
  Transmission Date: 20111222
  Serious: Yes (Other)
  Sender: FDA-Public Use
  Company Number: US-PFIZER INC-2011177274

PATIENT
  Sex: Female

DRUGS (9)
  1. PRISTIQ [Suspect]
     Indication: NERVOUSNESS
     Dosage: 50 MG, 1X/DAY
     Dates: start: 20110804, end: 20110801
  2. CYMBALTA [Suspect]
     Indication: HEADACHE
     Dosage: 4 TABLETS IN THE MORNING
     Dates: start: 20110501, end: 20110101
  3. ESTRADIOL [Concomitant]
     Indication: VULVOVAGINAL PAIN
     Dosage: 0.5 MG
  4. LEXAPRO [Suspect]
     Indication: DEPRESSION
     Dosage: UNK
     Dates: start: 20110601, end: 20110803
  5. FIORICET [Suspect]
     Indication: MIGRAINE
     Dosage: UNK
  6. CYMBALTA [Suspect]
     Indication: NERVOUSNESS
  7. CYMBALTA [Suspect]
     Indication: DEPRESSION
  8. KLONOPIN [Concomitant]
     Indication: PANIC ATTACK
     Dosage: 0.5 MG, AS NEEDED
  9. LEXAPRO [Suspect]
     Indication: NERVOUSNESS

REACTIONS (5)
  - WEIGHT DECREASED [None]
  - PAIN [None]
  - FAECES DISCOLOURED [None]
  - DISTURBANCE IN ATTENTION [None]
  - DIARRHOEA [None]
